FAERS Safety Report 13458375 (Version 2)
Quarter: 2017Q3

REPORT INFORMATION
  Report Type: Report from Study
  Country: GB (occurrence: GB)
  Receive Date: 20170419
  Receipt Date: 20170911
  Transmission Date: 20171127
  Serious: Yes (Other)
  Sender: FDA-Public Use
  Company Number: GB-JNJFOC-20170415894

PATIENT
  Age: 24 Year
  Sex: Female
  Weight: 107.4 kg

DRUGS (2)
  1. SERTRALINE [Concomitant]
     Active Substance: SERTRALINE HYDROCHLORIDE
     Route: 065
     Dates: start: 20140701
  2. STELARA [Suspect]
     Active Substance: USTEKINUMAB
     Indication: PSORIASIS
     Route: 058
     Dates: start: 20141115

REACTIONS (1)
  - Cervical dysplasia [Recovering/Resolving]

NARRATIVE: CASE EVENT DATE: 20160517
